FAERS Safety Report 6620186-8 (Version None)
Quarter: 2010Q1

REPORT INFORMATION
  Report Type: 
  Country: None (occurrence: None)
  Receive Date: 20100308
  Receipt Date: 20100308
  Transmission Date: 20100710
  Serious: Yes (Other)
  Sender: FDA-Public Use
  Company Number: None

PATIENT
  Sex: Male
  Weight: 72.5755 kg

DRUGS (1)
  1. DITROPAN [Suspect]
     Indication: HYPERTONIC BLADDER
     Dosage: 20 MGS 2 TIMES A DAY ORAL
     Route: 048
     Dates: start: 20070101

REACTIONS (18)
  - ALOPECIA [None]
  - ASTHENIA [None]
  - BLOOD URINE PRESENT [None]
  - DIZZINESS [None]
  - EYE PAIN [None]
  - FEELING ABNORMAL [None]
  - FEELING COLD [None]
  - HAEMATOCHEZIA [None]
  - MYALGIA [None]
  - NIGHT SWEATS [None]
  - OCULAR ICTERUS [None]
  - ONYCHOMADESIS [None]
  - PALLOR [None]
  - PYREXIA [None]
  - SWOLLEN TONGUE [None]
  - THINKING ABNORMAL [None]
  - UNEVALUABLE EVENT [None]
  - YELLOW SKIN [None]
